FAERS Safety Report 6649056-6 (Version None)
Quarter: 2010Q1

REPORT INFORMATION
  Report Type: 
  Country: None (occurrence: None)
  Receive Date: 20100319
  Receipt Date: 20100308
  Transmission Date: 20100710
  Serious: Yes (Hospitalization, Other)
  Sender: FDA-Public Use
  Company Number: 008427

PATIENT
  Age: 76 Year
  Sex: Female

DRUGS (2)
  1. KEPPRA [Suspect]
     Indication: CONVULSION
     Dosage: 500 MG QD,  SINGLE INTAKE ORAL, 500 MG BID ORAL
     Route: 048
     Dates: start: 20100125, end: 20100125
  2. KEPPRA [Suspect]
     Indication: CONVULSION
     Dosage: 500 MG QD,  SINGLE INTAKE ORAL, 500 MG BID ORAL
     Route: 048
     Dates: start: 20100126, end: 20100126

REACTIONS (2)
  - COMA [None]
  - ELECTROENCEPHALOGRAM ABNORMAL [None]
